FAERS Safety Report 26047074 (Version 1)
Quarter: 2025Q4

REPORT INFORMATION
  Report Type: Spontaneous
  Country: US (occurrence: None)
  Receive Date: 20251114
  Receipt Date: 20251114
  Transmission Date: 20260118
  Serious: Yes (Hospitalization)
  Sender: FDA-CTU
  Company Number: None

PATIENT
  Age: 65 Year
  Sex: Male

DRUGS (11)
  1. TALTZ [Suspect]
     Active Substance: IXEKIZUMAB
     Indication: Ankylosing spondylitis
     Dosage: FREQUENCY : MONTHLY;?11 FREQ: INJECT 1 PEN UNDER THE SKIN (SUBCUTANEOUS INJECTION) EVERY 4 WEEKS?
     Route: 058
     Dates: start: 20250415
  2. IATENOLOL TAB 25MG [Concomitant]
  3. ATORVASTATIN [Concomitant]
     Active Substance: ATORVASTATIN
  4. BUPROPION TAB 150MG XL [Concomitant]
  5. COSENTYX INJ 150MG/ML [Concomitant]
  6. CYMBALTA CAP 30MG [Concomitant]
  7. DEPAKOTE TAB 500MG DR [Concomitant]
  8. DICLOFENAC TAB 75MG DR [Concomitant]
  9. DIVALPROEX TAB 500MG DR [Concomitant]
  10. EUTHYROX TAB 50MCG [Concomitant]
  11. FISH OIL CAP 1000MG [Concomitant]

REACTIONS (1)
  - Cellulitis [None]

NARRATIVE: CASE EVENT DATE: 20250901
